FAERS Safety Report 5578508-5 (Version None)
Quarter: 2007Q4

REPORT INFORMATION
  Report Type: 
  Country: None (occurrence: None)
  Receive Date: 20071227
  Receipt Date: 20061004
  Transmission Date: 20080405
  Serious: Yes (Other)
  Sender: FDA-Public Use
  Company Number: 2006VX001683

PATIENT
  Age: 65 Year
  Sex: Male

DRUGS (3)
  1. NABILONE (NABILONE) [Suspect]
     Dosage: 1 MG;QID;PO
     Route: 048
  2. DEMEROL [Concomitant]
  3. ZANTAC [Concomitant]

REACTIONS (4)
  - CONFUSIONAL STATE [None]
  - HALLUCINATION [None]
  - MENTAL RETARDATION SEVERITY UNSPECIFIED [None]
  - SPEECH DISORDER [None]
